FAERS Safety Report 5406936-7 (Version None)
Quarter: 2007Q3

REPORT INFORMATION
  Report Type: 
  Country: None (occurrence: None)
  Receive Date: 20070807
  Receipt Date: 20070802
  Transmission Date: 20080115
  Serious: Yes (Hospitalization)
  Sender: FDA-Public Use
  Company Number: US-AMGEN-US222750

PATIENT
  Sex: Female

DRUGS (17)
  1. ARANESP [Suspect]
     Indication: DIALYSIS
     Route: 042
     Dates: start: 20061218
  2. SENSIPAR [Concomitant]
     Indication: HYPERPARATHYROIDISM SECONDARY
     Route: 048
     Dates: start: 20070406
  3. DOXERCALCIFEROL [Concomitant]
     Route: 042
  4. HEPARIN [Concomitant]
     Route: 042
     Dates: start: 20061218
  5. CALCIUM ACETATE [Concomitant]
     Route: 048
     Dates: start: 20070420
  6. QUESTRAN [Concomitant]
     Route: 048
     Dates: start: 20070102
  7. REMERON [Concomitant]
     Route: 048
     Dates: start: 20070102
  8. PROGRAF [Concomitant]
     Route: 048
     Dates: start: 20070102
  9. PROTONIX [Concomitant]
     Route: 048
     Dates: start: 20070102
  10. LACTOBACILLUS ACIDOPHILUS [Concomitant]
     Dates: start: 20070102
  11. FLONASE [Concomitant]
     Route: 045
     Dates: start: 20070102
  12. LOPRESSOR [Concomitant]
     Route: 048
     Dates: start: 20070102
  13. COUMADIN [Concomitant]
     Route: 048
     Dates: start: 20070102
  14. CEFTIN [Concomitant]
     Route: 048
     Dates: start: 20070102
  15. APRESOLINE [Concomitant]
     Route: 048
     Dates: start: 20070102
  16. ATROVENT [Concomitant]
     Route: 055
     Dates: start: 20070102
  17. ALBUTEROL [Concomitant]
     Route: 055
     Dates: start: 20070102

REACTIONS (4)
  - HAEMOGLOBIN DECREASED [None]
  - PANCYTOPENIA [None]
  - PLEURAL EFFUSION [None]
  - SPLENOMEGALY [None]
